FAERS Safety Report 6764573-6 (Version None)
Quarter: 2010Q2

REPORT INFORMATION
  Report Type: 
  Country: None (occurrence: None)
  Receive Date: 20100610
  Receipt Date: 20100111
  Transmission Date: 20101027
  Serious: No
  Sender: FDA-Public Use
  Company Number: US-TYCO HEALTHCARE/MALLINCKRODT-T201000079

PATIENT
  Age: 57 Year
  Sex: Female

DRUGS (8)
  1. OCTREOSCAN [Suspect]
     Indication: SOMATOSTATIN RECEPTOR SCAN
     Dosage: UNK
     Dates: start: 20100107, end: 20100107
  2. DICYCLOMINE [Concomitant]
     Indication: IRRITABLE BOWEL SYNDROME
     Dosage: UNK
  3. BENICAR [Concomitant]
     Indication: BLOOD PRESSURE INCREASED
     Dosage: UNK
  4. SYNTHROID [Concomitant]
     Indication: THYROID DISORDER
     Dosage: UNK
  5. LORAZEPAM [Concomitant]
     Indication: ANXIETY
     Dosage: UNK, PRN
  6. VITAMIN D [Concomitant]
     Dosage: UNK
  7. VITAMIN B NOS [Suspect]
     Dosage: UNK
  8. MULTI-VITAMINS [Suspect]
     Dosage: UNK

REACTIONS (1)
  - DRUG INEFFECTIVE [None]
